FAERS Safety Report 9927471 (Version 2)
Quarter: 2014Q1

REPORT INFORMATION
  Report Type: Spontaneous
  Country: MY (occurrence: MY)
  Receive Date: 20140227
  Receipt Date: 20140311
  Transmission Date: 20141002
  Serious: Yes (Hospitalization, Other)
  Sender: FDA-Public Use
  Company Number: PHHY2014MY022554

PATIENT
  Age: 15 Year
  Sex: Female

DRUGS (3)
  1. EXJADE [Suspect]
     Indication: THALASSAEMIA BETA
     Dosage: 1000 MG, DAILY
     Dates: start: 20130701
  2. EXJADE [Suspect]
     Dosage: 1500 MG, DAILY
     Dates: start: 20130708
  3. FOLATE [Concomitant]
     Dosage: 5 MG, QD

REACTIONS (7)
  - Cholangitis [Recovered/Resolved]
  - Anaphylactic shock [Recovered/Resolved]
  - Swelling [Recovered/Resolved]
  - Alanine aminotransferase increased [Recovered/Resolved]
  - Abdominal discomfort [Recovered/Resolved]
  - Pruritus [Recovered/Resolved]
  - Rash [Recovered/Resolved]
